FAERS Safety Report 8453616-X (Version None)
Quarter: 2012Q2

REPORT INFORMATION
  Report Type: 
  Country: None (occurrence: None)
  Receive Date: 20120620
  Receipt Date: 20120618
  Transmission Date: 20120825
  Serious: Yes (Hospitalization)
  Sender: FDA-Public Use
  Company Number: US-MERCK-1204USA04094

PATIENT
  Age: 75 Year
  Sex: Female

DRUGS (3)
  1. CALCIUM (UNSPECIFIED) [Concomitant]
     Route: 065
  2. LYRICA [Concomitant]
     Route: 065
  3. FOSAMAX [Suspect]
     Indication: BONE DISORDER
     Route: 048
     Dates: start: 20110201, end: 20111201

REACTIONS (3)
  - UPPER LIMB FRACTURE [None]
  - FEMUR FRACTURE [None]
  - ARTHRALGIA [None]
